FAERS Safety Report 15416892 (Version 2)
Quarter: 2020Q4

REPORT INFORMATION
  Report Type: Spontaneous
  Country: CA (occurrence: CA)
  Receive Date: 20180924
  Receipt Date: 20201209
  Transmission Date: 20210113
  Serious: Yes (Other)
  Sender: FDA-Public Use
  Company Number: CA-ORION CORPORATION ORION PHARMA-TREX2018-2721

PATIENT
  Age: 71 Year
  Sex: Female

DRUGS (6)
  1. PREDNISONE. [Concomitant]
     Active Substance: PREDNISONE
     Route: 065
  2. PENTASA [Concomitant]
     Active Substance: MESALAMINE
     Route: 054
  3. PLAQUENIL [Concomitant]
     Active Substance: HYDROXYCHLOROQUINE SULFATE
     Route: 065
  4. METHOTREXATE (TRADE NAME UNKNOWN) [Suspect]
     Active Substance: METHOTREXATE
     Indication: PRODUCT USED FOR UNKNOWN INDICATION
     Route: 065
  5. SIMPONI [Concomitant]
     Active Substance: GOLIMUMAB
     Route: 065
     Dates: end: 2018
  6. MEZAVANT [Concomitant]
     Active Substance: MESALAMINE
     Route: 065

REACTIONS (3)
  - Colitis ulcerative [Unknown]
  - Drug ineffective [Unknown]
  - Rheumatoid arthritis [Unknown]
